FAERS Safety Report 6555937-4 (Version None)
Quarter: 2010Q1

REPORT INFORMATION
  Report Type: 
  Country: None (occurrence: None)
  Receive Date: 20100128
  Receipt Date: 20100119
  Transmission Date: 20100710
  Serious: Yes (Hospitalization)
  Sender: FDA-Public Use
  Company Number: US-JNJFOC-20100110151

PATIENT
  Sex: Male
  Weight: 14.52 kg

DRUGS (2)
  1. RISPERDAL [Suspect]
     Indication: AUTISM
     Route: 048
  2. CHILDREN'S VITAMIN [Concomitant]
     Route: 048

REACTIONS (7)
  - DROOLING [None]
  - GAIT DISTURBANCE [None]
  - MUSCLE SPASMS [None]
  - MUSCULAR WEAKNESS [None]
  - POSTURE ABNORMAL [None]
  - SINUS CONGESTION [None]
  - SOMNOLENCE [None]
